FAERS Safety Report 26130057 (Version 1)
Quarter: 2025Q4

REPORT INFORMATION
  Report Type: Spontaneous
  Country: US (occurrence: US)
  Receive Date: 20251208
  Receipt Date: 20251208
  Transmission Date: 20260118
  Serious: Yes (Hospitalization, Other)
  Sender: RECORDATI
  Company Number: US-ORPHANEU-2025008690

PATIENT
  Age: 78 Year
  Sex: Male

DRUGS (3)
  1. DACTINOMYCIN [Suspect]
     Active Substance: DACTINOMYCIN
     Indication: Testicular yolk sac tumour
  2. CYCLOPHOSPHAMIDE [Suspect]
     Active Substance: CYCLOPHOSPHAMIDE
     Indication: Testicular yolk sac tumour
  3. ETOPOSIDE [Suspect]
     Active Substance: ETOPOSIDE
     Indication: Testicular yolk sac tumour

REACTIONS (12)
  - Streptococcal bacteraemia [Unknown]
  - Escherichia bacteraemia [Unknown]
  - Febrile neutropenia [Unknown]
  - Mucosal inflammation [Unknown]
  - Thrombocytopenia [Unknown]
  - Delirium [Unknown]
  - Dysphonia [Unknown]
  - Candida infection [Unknown]
  - Vocal cord thickening [Unknown]
  - Tongue necrosis [Recovering/Resolving]
  - Blood creatinine increased [Unknown]
  - Dysphagia [Unknown]
